FAERS Safety Report 14954038 (Version 2)
Quarter: 2018Q3

REPORT INFORMATION
  Report Type: Spontaneous
  Country: US (occurrence: US)
  Receive Date: 20180530
  Receipt Date: 20180718
  Transmission Date: 20181010
  Serious: No
  Sender: FDA-Public Use
  Company Number: US-ASTRAZENECA-2018SE70472

PATIENT
  Age: 76 Year
  Sex: Female
  Weight: 107 kg

DRUGS (9)
  1. EZETIMIBE. [Concomitant]
     Active Substance: EZETIMIBE
     Indication: TYPE 2 DIABETES MELLITUS
     Route: 048
  2. LYRICA [Concomitant]
     Active Substance: PREGABALIN
     Indication: ILL-DEFINED DISORDER
     Route: 048
  3. JARDIANCE [Concomitant]
     Active Substance: EMPAGLIFLOZIN
     Indication: TYPE 2 DIABETES MELLITUS
     Route: 048
  4. ASPIRIN. [Concomitant]
     Active Substance: ASPIRIN
     Indication: CARDIAC DISORDER
     Route: 048
  5. GLYBURIDE METFORMIN [Concomitant]
     Indication: TYPE 2 DIABETES MELLITUS
     Dosage: TWO TIMES A DAY
     Route: 048
  6. CELECOXIB. [Concomitant]
     Active Substance: CELECOXIB
     Indication: ARTHRITIS
     Route: 048
  7. CINNAMON. [Concomitant]
     Active Substance: CINNAMON
     Indication: BLOOD GLUCOSE INCREASED
     Route: 048
  8. BYDUREON BCISE [Suspect]
     Active Substance: EXENATIDE
     Indication: TYPE 2 DIABETES MELLITUS
     Route: 058
     Dates: start: 20180418
  9. VALSARTAN. [Concomitant]
     Active Substance: VALSARTAN
     Route: 048

REACTIONS (6)
  - Injection site swelling [Unknown]
  - Injection site pain [Recovered/Resolved]
  - Injection site pruritus [Not Recovered/Not Resolved]
  - Injection site erythema [Unknown]
  - Injection site rash [Not Recovered/Not Resolved]
  - Underdose [Recovered/Resolved]

NARRATIVE: CASE EVENT DATE: 2018
